FAERS Safety Report 8723776 (Version 2)
Quarter: 2013Q2

REPORT INFORMATION
  Report Type: Spontaneous
  Country: None (occurrence: None)
  Receive Date: 20120725
  Receipt Date: 20130415
  Transmission Date: 20140414
  Serious: Yes (Death, Other)
  Sender: FDA-Public Use
  Company Number: AUR-APL-2012-03081

PATIENT
  Age: 52 Year
  Sex: Female

DRUGS (8)
  1. AMLODIPINE [Suspect]
     Indication: PRODUCT USED FOR UNKNOWN INDICATION
     Dosage: 2.5 MG, UNK; 7.5 MG, UNK; 10 MG, UNK;
  2. OLANZAPINE [Suspect]
     Indication: PRODUCT USED FOR UNKNOWN INDICATION
  3. DIAZEPAM (DIAZEPAM) [Suspect]
     Indication: PRODUCT USED FOR UNKNOWN INDICATION
  4. IBUPROFEN (IBUPROFEN) [Suspect]
     Indication: PRODUCT USED FOR UNKNOWN INDICATION
  5. DOXEPIN HYDROCHLORIDE [Suspect]
     Indication: MENTAL DISORDER
     Dosage: 25 MG, DAILY, UNK
  6. PROTHIPENDYL [Suspect]
     Indication: PRODUCT USED FOR UNKNOWN INDICATION
     Dosage: DOUBLE DOSE AT NIGHT, UNK
  7. TILIDINE [Suspect]
     Indication: PRODUCT USED FOR UNKNOWN INDICATION
  8. METOPROLOL TARTRATE [Suspect]
     Indication: PRODUCT USED FOR UNKNOWN INDICATION

REACTIONS (10)
  - Toxicity to various agents [None]
  - Gait disturbance [None]
  - Somnolence [None]
  - Lethargy [None]
  - Drooling [None]
  - Pain [None]
  - Insomnia [None]
  - Polymedication [None]
  - Nervous system disorder [None]
  - Drug interaction [None]
